FAERS Safety Report 10037912 (Version 2)
Quarter: 2014Q2

REPORT INFORMATION
  Report Type: Spontaneous
  Country: IT (occurrence: IT)
  Receive Date: 20140326
  Receipt Date: 20140424
  Transmission Date: 20141212
  Serious: Yes (Other)
  Sender: FDA-Public Use
  Company Number: IT-MYLANLABS-2014S1006070

PATIENT
  Age: 56 Year
  Sex: Male

DRUGS (4)
  1. IRINOTECAN HYDROCHLORIDE TRIHYDRATE [Suspect]
     Indication: COLON CANCER
     Dosage: 350 MG CYCLICAL
     Route: 042
     Dates: start: 20080718
  2. BEVACIZUMAB [Suspect]
     Indication: COLON CANCER
     Dosage: 430 MG CYCLICAL
     Route: 042
     Dates: start: 20080718, end: 20081005
  3. FLUOROURACIL [Suspect]
     Indication: COLON CANCER
     Dosage: 110 MG CYCLICAL
     Route: 042
     Dates: start: 20080718
  4. LEDERFOLIN [Concomitant]
     Indication: PRODUCT USED FOR UNKNOWN INDICATION
     Route: 042

REACTIONS (1)
  - Proteinuria [Recovered/Resolved]
